FAERS Safety Report 7961220-2 (Version None)
Quarter: 2011Q4

REPORT INFORMATION
  Report Type: 
  Country: None (occurrence: None)
  Receive Date: 20111201
  Receipt Date: 20111201
  Transmission Date: 20120403
  Serious: Yes (Hospitalization)
  Sender: FDA-Public Use
  Company Number: None

PATIENT
  Sex: Female
  Weight: 95.3 kg

DRUGS (1)
  1. METASTRON [Suspect]

REACTIONS (31)
  - DIZZINESS [None]
  - DISEASE PROGRESSION [None]
  - BLOOD SODIUM DECREASED [None]
  - BLOOD GLUCOSE INCREASED [None]
  - BLOOD CALCIUM DECREASED [None]
  - OEDEMA PERIPHERAL [None]
  - FATIGUE [None]
  - ELECTROCARDIOGRAM ST-T CHANGE [None]
  - ASTHENIA [None]
  - INTERNATIONAL NORMALISED RATIO INCREASED [None]
  - BLOOD POTASSIUM INCREASED [None]
  - SUPRAVENTRICULAR TACHYCARDIA [None]
  - QRS AXIS ABNORMAL [None]
  - FALL [None]
  - BLOOD ALBUMIN DECREASED [None]
  - DYSPNOEA [None]
  - ESCHERICHIA INFECTION [None]
  - THROMBOCYTOPENIA [None]
  - BLOOD UREA INCREASED [None]
  - ASPARTATE AMINOTRANSFERASE INCREASED [None]
  - WHITE BLOOD CELL COUNT INCREASED [None]
  - HAEMATOCRIT DECREASED [None]
  - MYOGLOBIN BLOOD INCREASED [None]
  - HYPOTENSION [None]
  - CONFUSIONAL STATE [None]
  - DEHYDRATION [None]
  - HAEMOGLOBIN DECREASED [None]
  - ALANINE AMINOTRANSFERASE INCREASED [None]
  - URINARY TRACT INFECTION [None]
  - CELLULITIS [None]
  - BLOOD ALKALINE PHOSPHATASE INCREASED [None]
